FAERS Safety Report 23361188 (Version 1)
Quarter: 2024Q1

REPORT INFORMATION
  Report Type: Spontaneous
  Country: US (occurrence: None)
  Receive Date: 20240102
  Receipt Date: 20240102
  Transmission Date: 20240410
  Serious: Yes (Hospitalization)
  Sender: FDA-Public Use
  Company Number: None

PATIENT
  Age: 65 Year
  Sex: Male

DRUGS (1)
  1. CAPECITABINE [Suspect]
     Active Substance: CAPECITABINE
     Indication: Colon cancer
     Dosage: FREQUENCY : AS DIRECTED;?
     Route: 048
     Dates: start: 202310

REACTIONS (2)
  - Abdominal pain upper [None]
  - Therapy cessation [None]

NARRATIVE: CASE EVENT DATE: 20231229
